FAERS Safety Report 4307408-3 (Version None)
Quarter: 2004Q1

REPORT INFORMATION
  Report Type: 
  Country: None (occurrence: None)
  Receive Date: 20040226
  Receipt Date: 20040214
  Transmission Date: 20041129
  Serious: Yes (Other)
  Sender: FDA-Public Use
  Company Number: IN-SHR-04-021307

PATIENT
  Sex: 0

DRUGS (1)
  1. FLUDARA [Suspect]

REACTIONS (1)
  - HISTIOCYTOSIS HAEMATOPHAGIC [None]
